FAERS Safety Report 16066541 (Version 1)
Quarter: 2019Q2

REPORT INFORMATION
  Report Type: Spontaneous
  Country: US (occurrence: US)
  Receive Date: 20190313
  Receipt Date: 20190313
  Transmission Date: 20190711
  Serious: No
  Sender: FDA-Public Use
  Company Number: None

PATIENT
  Age: 37 Year
  Sex: Male
  Weight: 67.5 kg

DRUGS (2)
  1. LIALDA [Concomitant]
     Active Substance: MESALAMINE
  2. AZATHIOPRINE TABLETS, USP, 50 MG, 100 TABLETS [Suspect]
     Active Substance: AZATHIOPRINE
     Indication: COLITIS ULCERATIVE
     Dosage: ?          QUANTITY:2.5 TABLET(S);?
     Route: 048
     Dates: start: 20190220

REACTIONS (4)
  - Product quality issue [None]
  - Hypoaesthesia [None]
  - Manufacturing materials issue [None]
  - Product substitution issue [None]

NARRATIVE: CASE EVENT DATE: 20190302
